FAERS Safety Report 8240153-0 (Version None)
Quarter: 2012Q1

REPORT INFORMATION
  Report Type: 
  Country: None (occurrence: None)
  Receive Date: 20120328
  Receipt Date: 20110808
  Transmission Date: 20120608
  Serious: No
  Sender: FDA-Public Use
  Company Number: US-PFIZER INC-K201100929

PATIENT
  Age: 55 Year
  Sex: Female

DRUGS (1)
  1. SKELAXIN [Suspect]
     Dosage: UNK
     Route: 048

REACTIONS (2)
  - RASH [None]
  - ARTHRALGIA [None]
